FAERS Safety Report 11363476 (Version 1)
Quarter: 2015Q3

REPORT INFORMATION
  Report Type: Spontaneous
  Country: GB (occurrence: GB)
  Receive Date: 20150811
  Receipt Date: 20150811
  Transmission Date: 20151125
  Serious: Yes (Hospitalization)
  Sender: FDA-Public Use
  Company Number: GB-ACCORD-032775

PATIENT
  Age: 63 Year
  Sex: Male

DRUGS (24)
  1. IBUPROFEN. [Suspect]
     Active Substance: IBUPROFEN
     Indication: PAIN
     Dosage: THREE TIMES A DAY
     Route: 048
  2. EXENATIDE [Concomitant]
     Active Substance: EXENATIDE
  3. FYBOGEL [Concomitant]
     Active Substance: PLANTAGO OVATA SEED
  4. ONDANSETRON [Concomitant]
     Active Substance: ONDANSETRON
  5. SENNA [Concomitant]
     Active Substance: SENNA LEAF\SENNOSIDES\SENNOSIDES A AND B
  6. TIOTROPIUM/TIOTROPIUM BROMIDE [Concomitant]
  7. CODEINE [Concomitant]
     Active Substance: CODEINE
  8. OXYCODONE/OXYCODONE HYDROCHLORIDE/OXYCODONE PECTINATE/OXYCODONE TEREPHTHALATE [Concomitant]
  9. METFORMIN [Suspect]
     Active Substance: METFORMIN HYDROCHLORIDE
     Indication: DIABETES MELLITUS
     Route: 048
  10. DOCUSATE/DOCUSATE CALCIUM/DOCUSATE POTASSIUM/DOCUSATE SODIUM [Concomitant]
  11. FEXOFENADINE/FEXOFENADINE HYDROCHLORIDE [Concomitant]
  12. ISOPHANE INSULIN [Concomitant]
     Active Substance: INSULIN NOS
     Dosage: INSULIN ISOPHANE HUMAN (PRB)
  13. ATORVASTATIN [Concomitant]
     Active Substance: ATORVASTATIN
  14. PARACETAMOL [Concomitant]
     Active Substance: ACETAMINOPHEN
  15. ALLOPURINOL. [Suspect]
     Active Substance: ALLOPURINOL
     Indication: GOUT
     Route: 048
  16. GABAPENTIN. [Concomitant]
     Active Substance: GABAPENTIN
  17. SALBUTAMOL [Concomitant]
     Active Substance: ALBUTEROL
  18. CYCLIZINE [Concomitant]
     Active Substance: CYCLIZINE
  19. LOSARTAN. [Suspect]
     Active Substance: LOSARTAN
     Indication: PRODUCT USED FOR UNKNOWN INDICATION
     Route: 048
  20. ACETYLSALICYLIC ACID [Concomitant]
     Active Substance: ASPIRIN
  21. HYDROMOL [Concomitant]
  22. MOVICOL [Concomitant]
     Active Substance: POLYETHYLENE GLYCOL 3350\POTASSIUM CHLORIDE\SODIUM BICARBONATE\SODIUM CHLORIDE
  23. ACIDEX [Concomitant]
     Active Substance: CALCIUM CARBONATE\SODIUM ALGINATE\SODIUM BICARBONATE
  24. SERETIDE [Concomitant]
     Active Substance: FLUTICASONE FUROATE\SALMETEROL XINAFOATE

REACTIONS (2)
  - Hyperkalaemia [Recovered/Resolved]
  - Acute kidney injury [Recovered/Resolved]
